FAERS Safety Report 8503282-X (Version None)
Quarter: 2012Q3

REPORT INFORMATION
  Report Type: 
  Country: None (occurrence: None)
  Receive Date: 20120711
  Receipt Date: 20120709
  Transmission Date: 20120928
  Serious: Yes (Hospitalization, Other)
  Sender: FDA-Public Use
  Company Number: JP-BAYER-2012-067146

PATIENT
  Age: 76 Year
  Sex: Male

DRUGS (1)
  1. ASPIRIN [Suspect]
     Indication: CEREBRAL INFARCTION
     Route: 048

REACTIONS (6)
  - PANCREATIC PSEUDOCYST [None]
  - SPLENIC HAEMORRHAGE [None]
  - HAEMATEMESIS [None]
  - GASTRIC ULCER PERFORATION [None]
  - ABDOMINAL PAIN [None]
  - SHOCK HAEMORRHAGIC [None]
